FAERS Safety Report 4583174-1 (Version None)
Quarter: 2005Q1

REPORT INFORMATION
  Report Type: 
  Country: None (occurrence: None)
  Receive Date: 20050125
  Receipt Date: 20041001
  Transmission Date: 20050727
  Serious: Yes (Other)
  Sender: FDA-Public Use
  Company Number: US_000745619

PATIENT
  Age: 48 Year
  Sex: Female
  Weight: 59 kg

DRUGS (5)
  1. FORTEO [Suspect]
     Indication: OSTEOPOROSIS
     Dates: start: 20040924
  2. EVISTA [Suspect]
     Indication: OSTEOPOROSIS
     Dosage: 60 MG/L DAY
     Dates: start: 19990801, end: 20000401
  3. EVISTA [Suspect]
     Indication: PROPHYLAXIS
     Dosage: 60 MG/L DAY
     Dates: start: 19990801, end: 20000401
  4. PRILOSEC [Concomitant]
  5. VIOXX [Concomitant]

REACTIONS (8)
  - ANAL FISSURE [None]
  - ENDOMETRIOSIS [None]
  - FAECES DISCOLOURED [None]
  - GALLBLADDER DISORDER [None]
  - INJECTION SITE ERYTHEMA [None]
  - PAIN IN EXTREMITY [None]
  - SPIDER NAEVUS [None]
  - SURGERY [None]
